FAERS Safety Report 15187371 (Version 1)
Quarter: 2018Q3

REPORT INFORMATION
  Report Type: Report from Study
  Country: US (occurrence: US)
  Receive Date: 20180723
  Receipt Date: 20180723
  Transmission Date: 20181010
  Serious: No
  Sender: FDA-Public Use
  Company Number: US-EXELIXIS-CABO-18013620

PATIENT
  Age: 38 Year
  Sex: Male

DRUGS (1)
  1. CABOMETYX [Suspect]
     Active Substance: CABOZANTINIB S-MALATE
     Indication: RENAL NEOPLASM
     Dosage: 60 MG, QD
     Route: 048
     Dates: start: 20180405

REACTIONS (6)
  - Skin ulcer [Unknown]
  - Hair colour changes [Unknown]
  - Tongue blistering [Unknown]
  - Stomatitis [Unknown]
  - Drug dose omission [Unknown]
  - Fatigue [Not Recovered/Not Resolved]

NARRATIVE: CASE EVENT DATE: 201804
